FAERS Safety Report 7915304-5 (Version None)
Quarter: 2011Q4

REPORT INFORMATION
  Report Type: 
  Country: None (occurrence: None)
  Receive Date: 20111115
  Receipt Date: 20111108
  Transmission Date: 20120403
  Serious: No
  Sender: FDA-Public Use
  Company Number: US-BAYER-2011-109435

PATIENT
  Age: 28 Year
  Sex: Female

DRUGS (2)
  1. BETASERON [Suspect]
  2. VITAMIN D [Concomitant]
     Dosage: 800 U, UNK

REACTIONS (2)
  - INFLUENZA LIKE ILLNESS [None]
  - PALPITATIONS [None]
